FAERS Safety Report 5120445-4 (Version None)
Quarter: 2006Q4

REPORT INFORMATION
  Report Type: 
  Country: None (occurrence: None)
  Receive Date: 20061004
  Receipt Date: 20060626
  Transmission Date: 20070319
  Serious: Yes (Other)
  Sender: FDA-Public Use
  Company Number: 2006GB01090

PATIENT
  Age: 52 Year
  Sex: Female
  Weight: 93 kg

DRUGS (8)
  1. SYMBICORT [Suspect]
     Indication: ASTHMA
     Dosage: TWICE DAILY
     Route: 055
     Dates: start: 20060515, end: 20060501
  2. LEVOCETIRIZINE [Suspect]
     Indication: SEASONAL ALLERGY
     Route: 048
     Dates: start: 20060515, end: 20060501
  3. CO-AMOXICLAV [Concomitant]
     Indication: ABDOMINAL DISCOMFORT
     Route: 048
     Dates: start: 20060310, end: 20060317
  4. FLUTICASONE PROPIONATE [Concomitant]
     Indication: ASTHMA
     Route: 055
     Dates: start: 20000101
  5. MONTELUKAST [Concomitant]
     Indication: ASTHMA
     Dosage: DOSAGES/INTERVAL REPORTED AS ^1 DAYS^
     Route: 048
     Dates: start: 20060228
  6. PREDNISOLONE [Concomitant]
     Indication: ASTHMA
     Route: 048
     Dates: start: 20060228, end: 20060301
  7. ALBUTEROL SPIROS [Concomitant]
     Indication: ASTHMA
     Route: 055
     Dates: start: 20000101
  8. SALMETEROL [Concomitant]
     Indication: ASTHMA
     Route: 055
     Dates: start: 20000101

REACTIONS (4)
  - OEDEMA PERIPHERAL [None]
  - RASH [None]
  - SWELLING FACE [None]
  - URTICARIA [None]
